FAERS Safety Report 10696203 (Version 1)
Quarter: 2015Q1

REPORT INFORMATION
  Report Type: Spontaneous
  Country: TR (occurrence: TR)
  Receive Date: 20150107
  Receipt Date: 20150107
  Transmission Date: 20150721
  Serious: Yes (Hospitalization)
  Sender: FDA-Public Use
  Company Number: PHHY2014TR170423

PATIENT
  Age: 22 Year
  Sex: Female

DRUGS (1)
  1. VERAPAMIL [Suspect]
     Active Substance: VERAPAMIL HYDROCHLORIDE
     Indication: PRODUCT USED FOR UNKNOWN INDICATION
     Dosage: 1680 MG, UNK
     Route: 065

REACTIONS (8)
  - Pallor [Recovered/Resolved]
  - Anuria [Recovered/Resolved]
  - Suicidal ideation [Unknown]
  - Peripheral coldness [Recovered/Resolved]
  - Respiratory rate increased [Recovered/Resolved]
  - Toxicity to various agents [Unknown]
  - Cardiogenic shock [Recovered/Resolved]
  - Blood pressure decreased [Recovered/Resolved]
